FAERS Safety Report 17587067 (Version 1)
Quarter: 2020Q1

REPORT INFORMATION
  Report Type: Spontaneous
  Country: US (occurrence: US)
  Receive Date: 20200326
  Receipt Date: 20200326
  Transmission Date: 20200409
  Serious: Yes (Other)
  Sender: FDA-Public Use
  Company Number: US-COLLEGIUM PHARMACEUTICAL, INC.-2020CGM00066

PATIENT
  Age: 47 Year
  Sex: Female

DRUGS (1)
  1. XTAMPZA ER [Suspect]
     Active Substance: OXYCODONE
     Indication: PAIN
     Dosage: 72 MG, 2X/DAY ^IN THE MORNING AND AT NIGHT^
     Dates: start: 2019

REACTIONS (3)
  - Product dose omission [Unknown]
  - Pain [Unknown]
  - Spinal operation [Unknown]

NARRATIVE: CASE EVENT DATE: 202001
